FAERS Safety Report 4652722-5 (Version None)
Quarter: 2005Q2

REPORT INFORMATION
  Report Type: 
  Country: None (occurrence: None)
  Receive Date: 20050502
  Receipt Date: 20050418
  Transmission Date: 20051028
  Serious: Yes (Other)
  Sender: FDA-Public Use
  Company Number: 2005063593

PATIENT
  Age: 10 Year
  Sex: Female

DRUGS (1)
  1. SOLU-CORTEF [Suspect]
     Indication: EXANTHEM

REACTIONS (5)
  - BRONCHOSPASM [None]
  - DYSPHONIA [None]
  - EXANTHEM [None]
  - HYPERSENSITIVITY [None]
  - PRURITUS [None]
